FAERS Safety Report 10345934 (Version 1)
Quarter: 2014Q3

REPORT INFORMATION
  Report Type: Spontaneous
  Country: US (occurrence: US)
  Receive Date: 20140728
  Receipt Date: 20140728
  Transmission Date: 20150326
  Serious: Yes (Congenital Anomaly, Other)
  Sender: FDA-Public Use
  Company Number: US-PFIZER INC-2014208091

PATIENT
  Age: 12 Month
  Sex: Male

DRUGS (1)
  1. ZOLOFT [Suspect]
     Active Substance: SERTRALINE HYDROCHLORIDE
     Indication: DEPRESSION
     Dosage: UNK
     Route: 064

REACTIONS (5)
  - Pyloric stenosis [Unknown]
  - Autism spectrum disorder [Unknown]
  - Gastroenteritis [Unknown]
  - Foetal exposure during pregnancy [Unknown]
  - Developmental delay [Unknown]

NARRATIVE: CASE EVENT DATE: 19960809
